FAERS Safety Report 19389542 (Version 1)
Quarter: 2021Q2

REPORT INFORMATION
  Report Type: Spontaneous
  Country: US (occurrence: US)
  Receive Date: 20210608
  Receipt Date: 20210608
  Transmission Date: 20210717
  Serious: No
  Sender: FDA-Public Use
  Company Number: US-PFIZER INC-2021273357

PATIENT
  Age: 54 Year
  Sex: Female
  Weight: 88.45 kg

DRUGS (1)
  1. PREMARIN [Suspect]
     Active Substance: ESTROGENS, CONJUGATED
     Dosage: UNK

REACTIONS (3)
  - Hyperhidrosis [Recovering/Resolving]
  - Depressed mood [Recovering/Resolving]
  - Mood swings [Recovering/Resolving]
